FAERS Safety Report 4731213-7 (Version None)
Quarter: 2005Q3

REPORT INFORMATION
  Report Type: 
  Country: None (occurrence: None)
  Receive Date: 20050801
  Receipt Date: 20050725
  Transmission Date: 20060218
  Serious: Yes (Other)
  Sender: FDA-Public Use
  Company Number: 005316

PATIENT
  Age: 64 Year
  Sex: Female

DRUGS (6)
  1. MEDROXYPROGESTERONE ACETATE [Suspect]
     Dates: start: 19930101, end: 20010101
  2. ESTRADIOL [Suspect]
     Dates: start: 19930101, end: 20010101
  3. CENESTIN (SYNTHETHIC CONJUGATED ESTROGENS, A) TABLET [Suspect]
     Dates: start: 19930101, end: 20010101
  4. PREMARIN [Suspect]
     Dates: start: 19930101, end: 20010101
  5. PROVERA [Suspect]
     Dates: start: 19930101, end: 20010101
  6. PREMPRO [Suspect]
     Dates: start: 19930101, end: 20010101

REACTIONS (1)
  - BREAST CANCER FEMALE [None]
